FAERS Safety Report 5303714-4 (Version None)
Quarter: 2007Q2

REPORT INFORMATION
  Report Type: 
  Country: None (occurrence: None)
  Receive Date: 20070420
  Receipt Date: 20070412
  Transmission Date: 20071010
  Serious: Yes (Life-Threatening, Hospitalization)
  Sender: FDA-Public Use
  Company Number: FR-MERCK-0702FRA00085

PATIENT
  Age: 10 Year
  Sex: Female
  Weight: 29 kg

DRUGS (15)
  1. PRIMAXIN [Suspect]
     Indication: PSEUDOMONAS INFECTION
     Route: 041
     Dates: start: 20070218, end: 20070228
  2. PRIMAXIN [Suspect]
     Indication: STAPHYLOCOCCAL INFECTION
     Route: 041
     Dates: start: 20070218, end: 20070228
  3. COLISTIN [Concomitant]
     Indication: PSEUDOMONAS INFECTION
     Dates: start: 20070226
  4. COLISTIN [Concomitant]
     Indication: STAPHYLOCOCCAL INFECTION
     Dates: start: 20070226
  5. ITRACONAZOLE [Concomitant]
     Route: 065
     Dates: start: 20070226
  6. LINEZOLID [Concomitant]
     Indication: PSEUDOMONAS INFECTION
     Route: 047
     Dates: start: 20070101, end: 20070218
  7. LINEZOLID [Concomitant]
     Indication: STAPHYLOCOCCAL INFECTION
     Route: 047
     Dates: start: 20070101, end: 20070218
  8. PRISTINAMYCIN [Concomitant]
     Indication: PSEUDOMONAS INFECTION
     Route: 048
     Dates: start: 20070101, end: 20070218
  9. PRISTINAMYCIN [Concomitant]
     Indication: STAPHYLOCOCCAL INFECTION
     Route: 048
     Dates: start: 20070101, end: 20070218
  10. TOBRAMYCIN [Concomitant]
     Indication: PSEUDOMONAS INFECTION
     Dates: start: 20070101, end: 20070218
  11. TOBRAMYCIN [Concomitant]
     Indication: STAPHYLOCOCCAL INFECTION
     Dates: start: 20070101, end: 20070218
  12. FUROSEMIDE [Suspect]
     Indication: OEDEMA
     Route: 048
     Dates: start: 20070226, end: 20070228
  13. GLYBURIDE [Concomitant]
     Indication: DIABETES MELLITUS
     Route: 048
  14. CLORAZEPATE DIPOTASSIUM [Concomitant]
     Indication: DEPRESSION
     Route: 048
  15. SERTRALINE HYDROCHLORIDE [Concomitant]
     Indication: DEPRESSION
     Route: 048

REACTIONS (5)
  - DEHYDRATION [None]
  - HYPERCAPNIA [None]
  - HYPOCHLORAEMIA [None]
  - METABOLIC ALKALOSIS [None]
  - VOMITING [None]
